FAERS Safety Report 8327486-4 (Version None)
Quarter: 2012Q2

REPORT INFORMATION
  Report Type: 
  Country: None (occurrence: None)
  Receive Date: 20120502
  Receipt Date: 20120427
  Transmission Date: 20120825
  Serious: Yes (Other)
  Sender: FDA-Public Use
  Company Number: US-BAYER-200917126NA

PATIENT
  Age: 74 Year
  Sex: Male
  Weight: 94.331 kg

DRUGS (17)
  1. PROPOFOL [Concomitant]
     Route: 042
  2. WHOLE BLOOD [Concomitant]
     Dosage: 3 U, ONCE
     Route: 042
  3. TRASYLOL [Suspect]
     Dosage: UNK
     Route: 042
     Dates: start: 20080101
  4. TRASYLOL [Suspect]
  5. ESMOLOL HCL [Concomitant]
     Route: 042
  6. HYTRIN [Concomitant]
     Dosage: UNK
     Dates: start: 20040601
  7. ACETAMINOPHEN [Concomitant]
     Dosage: 1 G, UNK
     Route: 048
     Dates: start: 20030501
  8. UNKNOWN MEDICATIONS FROM CARIBBEAN [Concomitant]
     Dosage: PRIOR TO 04-JUN-2003
  9. TRASYLOL [Suspect]
     Indication: CORONARY ARTERY BYPASS
     Dosage: BOLUS, FOLLOWED BY 25 ML PER HOUR INFUSION
     Route: 042
     Dates: start: 20030606, end: 20030606
  10. ATENOLOL [Concomitant]
     Dosage: 50 MG, QD
     Route: 048
     Dates: start: 20030602
  11. TEMAZEPAM [Concomitant]
     Dosage: 10MG AS NEEDED
     Route: 048
  12. MORPHINE [Concomitant]
     Dosage: 10MG
     Dates: start: 20030531
  13. MAXOLON [Concomitant]
     Dosage: 10 MG
     Dates: start: 20030531
  14. AVAPRO [Concomitant]
     Dosage: UNK
     Dates: end: 20041211
  15. METFORMIN HCL [Concomitant]
     Dosage: 1000 MG, BID
     Route: 048
  16. BACTRIM [Concomitant]
  17. ASPIRIN [Concomitant]
     Dosage: 325 MG, QD
     Route: 048
     Dates: start: 20030602

REACTIONS (10)
  - RENAL FAILURE [None]
  - PAIN [None]
  - DEPRESSION [None]
  - MENTAL DISORDER [None]
  - INJURY [None]
  - ANHEDONIA [None]
  - UNEVALUABLE EVENT [None]
  - EMOTIONAL DISORDER [None]
  - ANXIETY [None]
  - FEAR [None]
